FAERS Safety Report 4743505-6 (Version None)
Quarter: 2005Q3

REPORT INFORMATION
  Report Type: 
  Country: None (occurrence: None)
  Receive Date: 20050809
  Receipt Date: 20050728
  Transmission Date: 20060218
  Serious: Yes (Hospitalization)
  Sender: FDA-Public Use
  Company Number: 2004220060FR

PATIENT
  Age: 4 Month
  Sex: Male
  Weight: 5.6 kg

DRUGS (9)
  1. SOLU-MEDROL [Suspect]
     Indication: ILL-DEFINED DISORDER
     Dosage: 10 MG (10 MG, 1 IN 1 D), INTRAVENOUS
     Route: 042
     Dates: start: 20040507, end: 20040512
  2. RANITIDINE HCL [Suspect]
     Indication: ILL-DEFINED DISORDER
     Dosage: 50 MG (50 MG, 1 IN 1 D), INTRAVENOUS
     Route: 042
     Dates: start: 20040506, end: 20040509
  3. BACTRIM [Suspect]
     Indication: ILL-DEFINED DISORDER
     Dosage: 480 MG (240 MG, 2 IN 1 D), INTRAVENOUS
     Route: 042
     Dates: start: 20040507, end: 20040510
  4. VANCOMYCIN HCL [Suspect]
     Indication: ILL-DEFINED DISORDER
     Dosage: 230 MG (230 MG, 1 IN 1 D), INTRAVENOUS
     Route: 042
     Dates: start: 20040505, end: 20040508
  5. TEGELINE (IMMUNOGLOBULIN HUMAN NORMAL) [Suspect]
     Indication: ILL-DEFINED DISORDER
     Dosage: 3 GRAM (3 GRAM, 1 IN 1 D), INTRAVENOUS
     Route: 042
     Dates: start: 20040507, end: 20040509
  6. ROCEPHIN [Suspect]
     Indication: ILL-DEFINED DISORDER
     Dosage: 500 MG (500 MG, 1 IN 1 D), INTRAVENOUS
     Route: 042
     Dates: start: 20040505, end: 20040512
  7. ACETAMINOPHEN [Concomitant]
  8. MIDAZOLAM HCL [Concomitant]
  9. AMIKACIN [Concomitant]

REACTIONS (5)
  - AGRANULOCYTOSIS [None]
  - BONE MARROW DEPRESSION [None]
  - IMMUNODEFICIENCY [None]
  - PNEUMOTHORAX [None]
  - RESPIRATORY DISTRESS [None]
